FAERS Safety Report 4718257-6 (Version None)
Quarter: 2005Q3

REPORT INFORMATION
  Report Type: 
  Country: None (occurrence: None)
  Receive Date: 20050714
  Receipt Date: 20041215
  Transmission Date: 20060218
  Serious: Yes (Other)
  Sender: FDA-Public Use
  Company Number: HQWYE040816DEC04

PATIENT
  Age: 66 Year
  Sex: Female
  Weight: 70.37 kg

DRUGS (14)
  1. ADVIL [Suspect]
     Indication: INSOMNIA
     Dosage: 2 DOSES, 1 IN 1 TOTAL
     Dates: start: 20040908, end: 20040908
  2. TYLENOL PM (DIPHENHYDRAMINE/PARACETAMOL, ) [Suspect]
     Indication: HEADACHE
     Dosage: 2 DOSES, 1 IN 1 TOTAL, ORAL
     Route: 048
     Dates: start: 20040908, end: 20040908
  3. TYLENOL PM (DIPHENHYDRAMINE/PARACETAMOL, ) [Suspect]
     Indication: INSOMNIA
     Dosage: 2 DOSES, 1 IN 1 TOTAL, ORAL
     Route: 048
     Dates: start: 20040908, end: 20040908
  4. LOPRESSOR [Concomitant]
  5. ADALAT CC [Concomitant]
  6. PRILOSEC [Concomitant]
  7. PREMARIN [Concomitant]
  8. .... [Concomitant]
  9. VITAMIN E [Concomitant]
  10. HYDROCHLOROTHIAZIDE [Concomitant]
  11. FLONASE [Concomitant]
  12. DIOVAN [Concomitant]
  13. DOXEPIN HCL [Concomitant]
  14. HYDROXYZINE [Concomitant]

REACTIONS (4)
  - HYPERSENSITIVITY [None]
  - PRURITUS [None]
  - SWELLING FACE [None]
  - URTICARIA [None]
